FAERS Safety Report 14123731 (Version 1)
Quarter: 2017Q4

REPORT INFORMATION
  Report Type: Spontaneous
  Country: FR (occurrence: FR)
  Receive Date: 20171025
  Receipt Date: 20171025
  Transmission Date: 20180321
  Serious: Yes (Hospitalization)
  Sender: FDA-Public Use
  Company Number: FR-ACCORD-060195

PATIENT
  Age: 72 Year
  Sex: Female

DRUGS (2)
  1. CARBOPLATIN ACCORD [Suspect]
     Active Substance: CARBOPLATIN
     Indication: CERVIX CARCINOMA
     Dosage: 450 MG (450 MG IN 1 SINGLE INTAKE)
     Route: 042
     Dates: start: 20170927
  2. PACLITAXEL ARROW [Concomitant]
     Active Substance: PACLITAXEL
     Indication: CERVIX CARCINOMA
     Dates: start: 20170927

REACTIONS (4)
  - Extravasation [Recovering/Resolving]
  - Infusion site oedema [Recovering/Resolving]
  - Off label use [Unknown]
  - Administration site extravasation [Recovering/Resolving]

NARRATIVE: CASE EVENT DATE: 20170927
